FAERS Safety Report 19423059 (Version 1)
Quarter: 2021Q2

REPORT INFORMATION
  Report Type: Spontaneous
  Country: US (occurrence: US)
  Receive Date: 20210616
  Receipt Date: 20210616
  Transmission Date: 20210717
  Serious: No
  Sender: FDA-Public Use
  Company Number: US-009507513-2105USA003932

PATIENT
  Sex: Male

DRUGS (5)
  1. STROMECTOL [Suspect]
     Active Substance: IVERMECTIN
     Indication: SKIN ULCER
     Dosage: UNK, EVERY 6 MONTHS
     Route: 048
     Dates: start: 202103
  2. TRIAMCINOLONE [Concomitant]
     Active Substance: TRIAMCINOLONE
     Indication: INFECTION PARASITIC
  3. MUPIROCIN. [Concomitant]
     Active Substance: MUPIROCIN
     Indication: INFECTION PARASITIC
  4. TRIAMCINOLONE [Concomitant]
     Active Substance: TRIAMCINOLONE
     Indication: HELMINTHIC INFECTION
     Dosage: UNK
     Dates: start: 2017
  5. MUPIROCIN. [Concomitant]
     Active Substance: MUPIROCIN
     Indication: HELMINTHIC INFECTION
     Dosage: UNK
     Dates: start: 2017

REACTIONS (6)
  - Skin laxity [Not Recovered/Not Resolved]
  - Erythema [Not Recovered/Not Resolved]
  - Removal of inert matter from skin or subcutaneous tissue [Not Recovered/Not Resolved]
  - Product colour issue [Unknown]
  - Infection parasitic [Not Recovered/Not Resolved]
  - Dermatitis [Not Recovered/Not Resolved]

NARRATIVE: CASE EVENT DATE: 2021
